FAERS Safety Report 8020662-X (Version None)
Quarter: 2012Q1

REPORT INFORMATION
  Report Type: 
  Country: None (occurrence: None)
  Receive Date: 20120103
  Receipt Date: 20111223
  Transmission Date: 20120608
  Serious: Yes (Disabling)
  Sender: FDA-Public Use
  Company Number: DK-ASTRAZENECA-2011SE57179

PATIENT
  Age: 435 Month
  Sex: Male
  Weight: 80 kg

DRUGS (11)
  1. ALMINOX ^DAK^ [Concomitant]
  2. CETIRIZINE [Concomitant]
  3. SEROQUEL XR [Suspect]
     Indication: ANXIETY
     Route: 048
     Dates: start: 20090130, end: 20110523
  4. PANTOPRAZOLE [Concomitant]
  5. RAMIPRIL [Concomitant]
  6. ESCITALOPRAM [Concomitant]
  7. LYRICA [Suspect]
     Indication: ANXIETY
     Route: 048
     Dates: start: 20091210, end: 20110826
  8. LITHIUM CITRATE [Concomitant]
  9. ATENODAN [Concomitant]
  10. NICORETTE [Concomitant]
  11. VALPROIC ACID [Suspect]
     Indication: BIPOLAR DISORDER
     Route: 048
     Dates: start: 20090320, end: 20110427

REACTIONS (1)
  - ATONIC URINARY BLADDER [None]
